FAERS Safety Report 17324258 (Version 1)
Quarter: 2020Q1

REPORT INFORMATION
  Report Type: Other
  Country: CH (occurrence: SZ)
  Receive Date: 20200127
  Receipt Date: 20200127
  Transmission Date: 20200409
  Serious: Yes (Other)
  Sender: FDA-Public Use
  Company Number: SZ-DEXPHARM-20200050

PATIENT
  Sex: Male

DRUGS (6)
  1. OMEPRAZOLE. [Suspect]
     Active Substance: OMEPRAZOLE
     Indication: PRODUCT USED FOR UNKNOWN INDICATION
  2. OLMESARTAN [Concomitant]
     Active Substance: OLMESARTAN
  3. NINTEDANIB [Suspect]
     Active Substance: NINTEDANIB
     Indication: PULMONARY FIBROSIS
  4. LERCANIDIPINE [Concomitant]
     Active Substance: LERCANIDIPINE
  5. INDACATEROL [Concomitant]
     Active Substance: INDACATEROL
  6. SALBUTAMOL [Concomitant]
     Active Substance: ALBUTEROL

REACTIONS (1)
  - Intestinal ischaemia [Recovering/Resolving]
